FAERS Safety Report 6254159-4 (Version None)
Quarter: 2009Q3

REPORT INFORMATION
  Report Type: 
  Country: None (occurrence: None)
  Receive Date: 20090702
  Receipt Date: 20090623
  Transmission Date: 20100115
  Serious: Yes (Hospitalization, Other)
  Sender: FDA-Public Use
  Company Number: PHHO2009US07033

PATIENT
  Sex: Male
  Weight: 84.807 kg

DRUGS (7)
  1. RAD 666 RAD+TAB+CMAS [Suspect]
     Indication: RENAL CELL CARCINOMA
     Dosage: UNKNOWN
     Route: 048
     Dates: start: 20070417, end: 20090528
  2. BEVACIZUMAB [Suspect]
     Indication: RENAL CELL CARCINOMA
     Dosage: UNK
     Dates: start: 20070417, end: 20090528
  3. PERIACTIN [Concomitant]
  4. FLOMAX [Concomitant]
  5. SIMVASTATIN [Concomitant]
  6. ATENOLOL [Concomitant]
  7. LASIX [Concomitant]

REACTIONS (6)
  - ANAEMIA [None]
  - BLOOD GLUCOSE INCREASED [None]
  - HEMIPARESIS [None]
  - HYPOAESTHESIA [None]
  - PARAESTHESIA [None]
  - THROMBOCYTOPENIA [None]
